FAERS Safety Report 7979016 (Version 4)
Quarter: 2013Q1

REPORT INFORMATION
  Report Type: Spontaneous
  Country: CA (occurrence: CA)
  Receive Date: 20110607
  Receipt Date: 20130122
  Transmission Date: 20140127
  Serious: Yes (Other)
  Sender: FDA-Public Use
  Company Number: CA-ELI_LILLY_AND_COMPANY-CA201105008333

PATIENT
  Age: 16 Year
  Sex: Male

DRUGS (3)
  1. PROZAC [Suspect]
     Indication: DEPRESSION
     Dosage: UNK UNK, UNKNOWN
     Dates: start: 20090624
  2. PROZAC [Suspect]
     Dosage: UNK, UNKNOWN
     Dates: start: 200906, end: 2009
  3. PROZAC [Suspect]
     Dosage: UNK, UNKNOWN
     Dates: start: 2009, end: 2009

REACTIONS (10)
  - Homicide [Recovered/Resolved]
  - Self injurious behaviour [Unknown]
  - Suicide attempt [Unknown]
  - Agitation [Unknown]
  - Mania [Unknown]
  - Mental impairment [Unknown]
  - Condition aggravated [Unknown]
  - Feeling abnormal [Unknown]
  - Anger [Unknown]
  - Off label use [Recovered/Resolved]
